FAERS Safety Report 9947279 (Version 1)
Quarter: 2014Q1

REPORT INFORMATION
  Report Type: Report from Study
  Country: US (occurrence: US)
  Receive Date: 20140303
  Receipt Date: 20140303
  Transmission Date: 20141002
  Serious: No
  Sender: FDA-Public Use
  Company Number: US-ABBVIE-13P-163-1065373-00

PATIENT
  Age: 61 Year
  Sex: Female

DRUGS (9)
  1. HUMIRA [Suspect]
     Indication: RHEUMATOID ARTHRITIS
     Dates: start: 201004
  2. METFORMIN [Concomitant]
     Indication: DIABETES MELLITUS
  3. CYMBALTA [Concomitant]
     Indication: DEPRESSION
     Dosage: 50 MG DAILY
  4. CYMBALTA [Concomitant]
     Indication: FIBROMYALGIA
  5. METHOTREXATE [Concomitant]
     Indication: RHEUMATOID ARTHRITIS
     Dosage: 6 TABLETS WEEKLY
  6. FOLIC ACID [Concomitant]
     Indication: VITAMIN SUPPLEMENTATION
     Dosage: 2 MG DAILY
  7. OTC PRILOSEC [Concomitant]
     Indication: GASTROOESOPHAGEAL REFLUX DISEASE
     Dosage: EVERY MORNING
  8. LISINOPRIL [Concomitant]
     Indication: HYPERTENSION
  9. LESCOL [Concomitant]
     Indication: BLOOD CHOLESTEROL INCREASED

REACTIONS (3)
  - Fatigue [Recovering/Resolving]
  - Sinusitis [Recovering/Resolving]
  - Pain [Recovering/Resolving]
